FAERS Safety Report 9521386 (Version 1)
Quarter: 2013Q3

REPORT INFORMATION
  Report Type: Spontaneous
  Country: ZA (occurrence: ZA)
  Receive Date: 20130913
  Receipt Date: 20130913
  Transmission Date: 20140515
  Serious: Yes (Death)
  Sender: FDA-Public Use
  Company Number: ZA-ASTRAZENECA-2013SE68355

PATIENT
  Sex: Male

DRUGS (5)
  1. SYMBICORD TURBUHALER [Suspect]
     Indication: ASTHMA
     Route: 055
  2. ASMANEX [Suspect]
     Indication: ASTHMA
     Route: 065
  3. SINGULAIR [Concomitant]
     Indication: ASTHMA
  4. OXYGEN [Concomitant]
  5. OTHER ASTHMA MEDICATIONS [Concomitant]
     Indication: ASTHMA

REACTIONS (1)
  - General physical health deterioration [Fatal]
